FAERS Safety Report 14544915 (Version 3)
Quarter: 2018Q2

REPORT INFORMATION
  Report Type: Spontaneous
  Country: IT (occurrence: IT)
  Receive Date: 20180217
  Receipt Date: 20180607
  Transmission Date: 20180711
  Serious: Yes (Disabling, Other)
  Sender: FDA-Public Use
  Company Number: IT-MYLANLABS-2018M1010129

PATIENT
  Age: 66 Year
  Sex: Male
  Weight: 70 kg

DRUGS (6)
  1. CISPLATIN. [Suspect]
     Active Substance: CISPLATIN
     Indication: ADRENOCORTICAL CARCINOMA
     Dosage: 40 MG/M2, UNK
     Route: 042
  2. ETOPOSIDE. [Suspect]
     Active Substance: ETOPOSIDE
     Indication: ADRENOCORTICAL CARCINOMA
     Dosage: 100 MG/M2, UNK
     Route: 042
  3. MITOTANE [Suspect]
     Active Substance: MITOTANE
     Indication: ADRENOCORTICAL CARCINOMA
     Dosage: 3 G, QD
     Route: 048
  4. G-CSF [Concomitant]
     Active Substance: GRANULOCYTE COLONY-STIMULATING FACTOR NOS
     Indication: PROPHYLAXIS
     Dosage: UNK
     Route: 065
  5. METYRAPONE [Suspect]
     Active Substance: METYRAPONE
     Indication: CUSHING^S SYNDROME
     Dosage: 750 MG, QD (250MG THREE TIMES DAILY)
     Route: 048
  6. DOXORUBICIN [Suspect]
     Active Substance: DOXORUBICIN
     Indication: ADRENOCORTICAL CARCINOMA
     Dosage: 40 MG/M2, UNK
     Route: 042

REACTIONS (7)
  - Anaemia [Recovered/Resolved]
  - Nausea [Recovered/Resolved]
  - Thrombocytopenia [Unknown]
  - Vomiting [Unknown]
  - Asthenia [Recovered/Resolved]
  - Product use in unapproved indication [Unknown]
  - Malignant neoplasm progression [Unknown]
